FAERS Safety Report 12929161 (Version 6)
Quarter: 2017Q1

REPORT INFORMATION
  Report Type: Report from Study
  Country: US (occurrence: US)
  Receive Date: 20161110
  Receipt Date: 20170316
  Transmission Date: 20170428
  Serious: Yes (Hospitalization, Other)
  Sender: FDA-Public Use
  Company Number: US-EISAI MEDICAL RESEARCH-EC-2016-019910

PATIENT
  Age: 78 Year
  Sex: Female
  Weight: 57.3 kg

DRUGS (18)
  1. VASOTEC [Concomitant]
     Active Substance: ENALAPRIL MALEATE
  2. DORZOLAMIDE HCL/TIMOLOL DROPS [Concomitant]
  3. IMODIUM [Concomitant]
     Active Substance: LOPERAMIDE HYDROCHLORIDE
  4. ERIBULIN [Suspect]
     Active Substance: ERIBULIN
     Route: 041
     Dates: start: 20161213, end: 20161220
  5. NYSTATIN. [Concomitant]
     Active Substance: NYSTATIN
  6. ERIBULIN [Suspect]
     Active Substance: ERIBULIN
     Indication: TRIPLE NEGATIVE BREAST CANCER
     Route: 041
     Dates: start: 20160415, end: 20161028
  7. ERIBULIN [Suspect]
     Active Substance: ERIBULIN
     Route: 041
     Dates: start: 20161118, end: 20161118
  8. PRILOSEC [Concomitant]
     Active Substance: OMEPRAZOLE MAGNESIUM
  9. TOPROL XL [Concomitant]
     Active Substance: METOPROLOL SUCCINATE
  10. NORVASC [Concomitant]
     Active Substance: AMLODIPINE BESYLATE
  11. VITAMIN D3 [Concomitant]
     Active Substance: CHOLECALCIFEROL
  12. SYSTANE DROPS [Concomitant]
  13. PEMBROLIZUMAB. [Suspect]
     Active Substance: PEMBROLIZUMAB
     Indication: TRIPLE NEGATIVE BREAST CANCER
     Route: 041
     Dates: start: 20160415, end: 20161021
  14. LASIX [Concomitant]
     Active Substance: FUROSEMIDE
  15. TYLENOL [Concomitant]
     Active Substance: ACETAMINOPHEN
  16. BENADRYL [Concomitant]
     Active Substance: DIPHENHYDRAMINE HYDROCHLORIDE
  17. SALT TABLETS [Concomitant]
     Active Substance: SODIUM CHLORIDE
  18. ALDACTONE [Concomitant]
     Active Substance: SPIRONOLACTONE

REACTIONS (3)
  - Diarrhoea [Recovered/Resolved]
  - Neutropenia [Recovered/Resolved]
  - Respiratory failure [Recovered/Resolved]

NARRATIVE: CASE EVENT DATE: 20160826
